FAERS Safety Report 19075057 (Version 1)
Quarter: 2021Q1

REPORT INFORMATION
  Report Type: Spontaneous
  Country: US (occurrence: US)
  Receive Date: 20210331
  Receipt Date: 20210331
  Transmission Date: 20210420
  Serious: No
  Sender: FDA-Public Use
  Company Number: US-B.I. PHARMACEUTICALS,INC./RIDGEFIELD-2021-BI-092929

PATIENT
  Age: 86 Year
  Sex: Female

DRUGS (2)
  1. SPIRIVA RESPIMAT [Suspect]
     Active Substance: TIOTROPIUM BROMIDE
     Indication: ASTHMA
     Dosage: 1.25 MCG TWO INHALATIONS DAILY IN THE AM
     Route: 065
     Dates: start: 202101
  2. COVID?19 VACCINE [Concomitant]
     Indication: COVID-19
     Route: 065
     Dates: start: 20210221, end: 20210321

REACTIONS (4)
  - Tremor [Not Recovered/Not Resolved]
  - Social (pragmatic) communication disorder [Not Recovered/Not Resolved]
  - Malaise [Not Recovered/Not Resolved]
  - Dizziness [Recovered/Resolved]

NARRATIVE: CASE EVENT DATE: 20210322
